FAERS Safety Report 14841518 (Version 1)
Quarter: 2018Q2

REPORT INFORMATION
  Report Type: Spontaneous
  Country: FR (occurrence: FR)
  Receive Date: 20180503
  Receipt Date: 20180503
  Transmission Date: 20180711
  Serious: Yes (Other)
  Sender: FDA-Public Use
  Company Number: FR-MERCK KGAA-2047089

PATIENT
  Age: 53 Year
  Sex: Female

DRUGS (1)
  1. NOVOTHYROX [Suspect]
     Active Substance: LEVOTHYROXINE SODIUM
     Indication: PRODUCT USED FOR UNKNOWN INDICATION

REACTIONS (16)
  - Asthenia [None]
  - Headache [None]
  - General physical condition abnormal [None]
  - Hot flush [None]
  - Appetite disorder [None]
  - Overdose [None]
  - Impaired work ability [None]
  - Decreased interest [None]
  - General physical health deterioration [None]
  - Sleep disorder [None]
  - Irritability [None]
  - Emotional disorder [None]
  - Muscle spasms [None]
  - Hyperthyroidism [Recovered/Resolved]
  - Stress [None]
  - Depression [None]

NARRATIVE: CASE EVENT DATE: 201704
